FAERS Safety Report 8247512-0 (Version None)
Quarter: 2012Q1

REPORT INFORMATION
  Report Type: 
  Country: None (occurrence: None)
  Receive Date: 20120330
  Receipt Date: 20120328
  Transmission Date: 20120608
  Serious: Yes (Hospitalization, Other)
  Sender: FDA-Public Use
  Company Number: VE-ABBOTT-12P-178-0919632-00

PATIENT
  Age: 20 Year
  Sex: Female

DRUGS (3)
  1. METHOTREXATE [Concomitant]
  2. HUMIRA [Suspect]
     Indication: PSORIASIS
     Route: 058
     Dates: start: 20111201, end: 20120201
  3. METHOTREXATE [Concomitant]
     Indication: PSORIASIS
     Route: 065
     Dates: start: 20111201

REACTIONS (4)
  - POLYMYOSITIS [None]
  - MYALGIA [None]
  - MUSCLE ENZYME INCREASED [None]
  - PYREXIA [None]
